FAERS Safety Report 6180925-X (Version None)
Quarter: 2009Q2

REPORT INFORMATION
  Report Type: 
  Country: None (occurrence: None)
  Receive Date: 20090430
  Receipt Date: 20090123
  Transmission Date: 20091009
  Serious: No
  Sender: FDA-Public Use
  Company Number: 274063

PATIENT
  Age: 79 Year
  Sex: Female
  Weight: 68 kg

DRUGS (1)
  1. LUCENTIS [Suspect]
     Indication: MACULAR DEGENERATION
     Dosage: 0.05 ML, Q4W, INTRAVITREAL
     Dates: start: 20081211

REACTIONS (2)
  - HEADACHE [None]
  - PRURITUS [None]
